FAERS Safety Report 9907160 (Version 2)
Quarter: 2014Q1

REPORT INFORMATION
  Report Type: Spontaneous
  Country: US (occurrence: US)
  Receive Date: 20140218
  Receipt Date: 20140326
  Transmission Date: 20141002
  Serious: Yes (Other)
  Sender: FDA-Public Use
  Company Number: US-PFIZER INC-2014041356

PATIENT
  Age: 74 Year
  Sex: Female
  Weight: 61.22 kg

DRUGS (6)
  1. LIPITOR [Suspect]
     Dosage: 10 MG, 1X/DAY
  2. GLUCOTROL [Suspect]
     Dosage: 10 MG, 1X/DAY
  3. PROCARDIA XL [Suspect]
     Dosage: 30 MG, 1X/DAY
  4. PROTONIX [Suspect]
     Dosage: 40 MG, 1X/DAY
  5. ACCUPRIL [Suspect]
     Dosage: 10 MG, 1X/DAY
  6. COUMADIN [Suspect]
     Dosage: 12.5 MG (2 AND 1/2 OF 5 MG TABLET), 1X/DAY

REACTIONS (1)
  - Pneumonia [Recovered/Resolved]
